FAERS Safety Report 5059238-5 (Version None)
Quarter: 2006Q2

REPORT INFORMATION
  Report Type: 
  Country: None (occurrence: None)
  Receive Date: 20060629
  Receipt Date: 20060413
  Transmission Date: 20061013
  Serious: No
  Sender: FDA-Public Use
  Company Number: PHEH2006US04930

PATIENT
  Age: 66 Year
  Sex: Female

DRUGS (5)
  1. ENABLEX [Suspect]
     Indication: HYPERTONIC BLADDER
     Dosage: 7.5 MG, QD
     Dates: start: 20060410
  2. GLUCOPHAGE [Concomitant]
  3. AVANDIA [Concomitant]
  4. ZOCOR [Concomitant]
  5. ACIPHEX [Concomitant]

REACTIONS (2)
  - ABDOMINAL DISTENSION [None]
  - NAUSEA [None]
